FAERS Safety Report 24557466 (Version 1)
Quarter: 2024Q4

REPORT INFORMATION
  Report Type: Spontaneous
  Country: JP (occurrence: JP)
  Receive Date: 20241028
  Receipt Date: 20241028
  Transmission Date: 20250114
  Serious: No
  Sender: UCB
  Company Number: JP-UCBSA-2024056005

PATIENT

DRUGS (1)
  1. NEUPRO [Suspect]
     Active Substance: ROTIGOTINE
     Indication: Product used for unknown indication
     Dosage: 4.5 MILLIGRAM

REACTIONS (1)
  - Product adhesion issue [Unknown]

NARRATIVE: CASE EVENT DATE: 20241008
